FAERS Safety Report 9471097 (Version 2)
Quarter: 2014Q1

REPORT INFORMATION
  Report Type: Spontaneous
  Country: US (occurrence: US)
  Receive Date: 20130822
  Receipt Date: 20140130
  Transmission Date: 20141002
  Serious: Yes (Hospitalization, Other)
  Sender: FDA-Public Use
  Company Number: US-B.I. PHARMACEUTICALS,INC./RIDGEFIELD-2013-BI-25632BP

PATIENT
  Sex: Female
  Weight: 79.83 kg

DRUGS (8)
  1. PRADAXA [Suspect]
     Indication: ANTICOAGULANT THERAPY
     Dosage: 300 MG
     Route: 048
     Dates: start: 20110302, end: 20111020
  2. PRADAXA [Suspect]
     Indication: ATRIAL FIBRILLATION
  3. CLONIDINE [Concomitant]
     Dosage: 0.2 MG
     Route: 048
  4. LISINOPRIL [Concomitant]
     Dosage: 20 MG
     Route: 048
  5. LOVASTATIN [Concomitant]
     Dosage: 40 MG
     Route: 048
  6. LYRICA [Concomitant]
     Dosage: 300 MG
     Route: 048
  7. METFORMIN [Concomitant]
     Dosage: 1700 MG
     Route: 048
  8. OMEPRAZOLE [Concomitant]
     Dosage: 20 MG
     Route: 048

REACTIONS (5)
  - Lower gastrointestinal haemorrhage [Recovered/Resolved]
  - Coagulopathy [Unknown]
  - Renal failure acute [Unknown]
  - Contusion [Unknown]
  - Ecchymosis [Unknown]
